FAERS Safety Report 9891128 (Version 1)
Quarter: 2014Q1

REPORT INFORMATION
  Report Type: Spontaneous
  Country: US (occurrence: None)
  Receive Date: 20140211
  Receipt Date: 20140211
  Transmission Date: 20141002
  Serious: Yes (Other)
  Sender: FDA-Public Use
  Company Number: None

PATIENT
  Age: 37 Year
  Sex: Male
  Weight: 89.81 kg

DRUGS (1)
  1. NOSTRILLA [Suspect]

REACTIONS (2)
  - Ageusia [None]
  - Anosmia [None]
